FAERS Safety Report 18296619 (Version 1)
Quarter: 2020Q3

REPORT INFORMATION
  Report Type: Spontaneous
  Country: US (occurrence: US)
  Receive Date: 20200922
  Receipt Date: 20200922
  Transmission Date: 20201103
  Serious: Yes (Other)
  Sender: FDA-Public Use
  Company Number: US-PFIZER INC-2020364129

PATIENT
  Age: 64 Year
  Sex: Female
  Weight: 104.33 kg

DRUGS (2)
  1. RELPAX [Suspect]
     Active Substance: ELETRIPTAN HYDROBROMIDE
     Indication: MIGRAINE
     Dosage: UNK
  2. RELPAX [Suspect]
     Active Substance: ELETRIPTAN HYDROBROMIDE
     Indication: SUBDURAL HAEMATOMA

REACTIONS (7)
  - Road traffic accident [Unknown]
  - Product packaging issue [Unknown]
  - Joint injury [Unknown]
  - Cerebral cyst [Recovered/Resolved]
  - Facial paralysis [Unknown]
  - Arthralgia [Unknown]
  - Migraine [Unknown]

NARRATIVE: CASE EVENT DATE: 2020
